FAERS Safety Report 12312580 (Version 1)
Quarter: 2016Q2

REPORT INFORMATION
  Report Type: Spontaneous
  Country: CN (occurrence: CN)
  Receive Date: 20160428
  Receipt Date: 20160428
  Transmission Date: 20160815
  Serious: Yes (Other)
  Sender: FDA-Public Use
  Company Number: CN-HOSPIRA-3263729

PATIENT
  Age: 43 Year
  Sex: Male

DRUGS (2)
  1. CYTARABINE. [Suspect]
     Active Substance: CYTARABINE
     Indication: ACUTE MYELOID LEUKAEMIA RECURRENT
     Dates: start: 20130627
  2. FLUDARABINE [Suspect]
     Active Substance: FLUDARABINE PHOSPHATE
     Indication: ACUTE MYELOID LEUKAEMIA RECURRENT
     Dates: start: 20130627

REACTIONS (1)
  - Rash pustular [Recovering/Resolving]

NARRATIVE: CASE EVENT DATE: 20130701
